FAERS Safety Report 9326260 (Version 1)
Quarter: 2013Q3

REPORT INFORMATION
  Report Type: Spontaneous
  Country: US (occurrence: None)
  Receive Date: 20130603
  Receipt Date: 20130603
  Transmission Date: 20140515
  Serious: Yes (Hospitalization)
  Sender: FDA-Public Use
  Company Number: None

PATIENT
  Age: 55 Year
  Sex: Female
  Weight: 85.6 kg

DRUGS (4)
  1. NULOJIX [Suspect]
     Indication: RENAL DISORDER
     Route: 042
     Dates: start: 20130506
  2. CELLCEPT [Suspect]
     Indication: RENAL TRANSPLANT
     Dates: start: 20130311
  3. ALEMTUZUMAB [Concomitant]
  4. PREDNISONE TAPER [Concomitant]

REACTIONS (4)
  - Haemoglobin decreased [None]
  - Fatigue [None]
  - Blood creatinine increased [None]
  - Condition aggravated [None]
